FAERS Safety Report 8040342-4 (Version None)
Quarter: 2012Q1

REPORT INFORMATION
  Report Type: 
  Country: None (occurrence: None)
  Receive Date: 20120111
  Receipt Date: 20111228
  Transmission Date: 20120608
  Serious: No
  Sender: FDA-Public Use
  Company Number: US-AMGEN-USASP2011069281

PATIENT
  Age: 55 Year
  Sex: Female

DRUGS (2)
  1. ENBREL [Suspect]
     Indication: RHEUMATOID ARTHRITIS
     Dosage: 50 MG, QWK
     Dates: start: 20070125, end: 20111101
  2. TREXALL [Concomitant]
     Dosage: 1 MG, UNK
     Dates: start: 20070101

REACTIONS (2)
  - RESPIRATORY TRACT INFECTION [None]
  - EAR TUBE INSERTION [None]
